FAERS Safety Report 5775914-0 (Version None)
Quarter: 2008Q2

REPORT INFORMATION
  Report Type: 
  Country: None (occurrence: None)
  Receive Date: 20080617
  Receipt Date: 20080612
  Transmission Date: 20081010
  Serious: Yes (Other)
  Sender: FDA-Public Use
  Company Number: US-GILEAD-2008-0014778

PATIENT
  Sex: Male
  Weight: 86.26 kg

DRUGS (17)
  1. LETAIRIS [Suspect]
     Indication: PULMONARY ARTERIAL HYPERTENSION
     Route: 048
     Dates: start: 20080430
  2. LETAIRIS [Suspect]
     Route: 048
     Dates: start: 20070907, end: 20071025
  3. OXYGEN [Concomitant]
     Indication: PULMONARY ARTERIAL HYPERTENSION
     Route: 045
  4. VIAGRA [Concomitant]
     Indication: PULMONARY ARTERIAL HYPERTENSION
     Route: 048
  5. LASIX [Concomitant]
     Indication: PULMONARY ARTERIAL HYPERTENSION
     Route: 048
  6. DIGOXIN [Concomitant]
     Indication: ESSENTIAL HYPERTENSION
     Route: 048
  7. K-DUR [Concomitant]
     Indication: SUPPLEMENTATION THERAPY
     Route: 048
  8. WARFARIN SODIUM [Concomitant]
     Indication: ANTICOAGULANT THERAPY
     Route: 048
  9. WARFARIN SODIUM [Concomitant]
     Route: 048
  10. TEMAZEPAM [Concomitant]
     Indication: DEPRESSION
     Dosage: 15-30
  11. ADVAIR DISKUS 100/50 [Concomitant]
     Indication: ASTHMA
     Route: 055
  12. TRACLEER [Concomitant]
     Route: 048
  13. FLUTICASONE PROPIONATE [Concomitant]
     Route: 055
  14. ALLEGRA [Concomitant]
     Route: 048
  15. CHLORPHENIRAMINE MALEATE [Concomitant]
     Route: 048
  16. SPIRONOLACTONE [Concomitant]
     Route: 048
  17. ALBUTEROL [Concomitant]
     Route: 055

REACTIONS (1)
  - LIVER FUNCTION TEST ABNORMAL [None]
